FAERS Safety Report 7080081-X (Version None)
Quarter: 2010Q4

REPORT INFORMATION
  Report Type: 
  Country: None (occurrence: None)
  Receive Date: 20101102
  Receipt Date: 20101025
  Transmission Date: 20110411
  Serious: No
  Sender: FDA-Public Use
  Company Number: US-AMGEN LTD.-KDL435394

PATIENT

DRUGS (3)
  1. NPLATE [Suspect]
     Indication: IDIOPATHIC THROMBOCYTOPENIC PURPURA
     Dosage: 10 A?G/KG, UNK
     Dates: start: 20100501
  2. NPLATE [Suspect]
  3. PENICILLIN G [Concomitant]
     Dosage: UNK UNK, UNK

REACTIONS (2)
  - TOOTH ABSCESS [None]
  - WEIGHT INCREASED [None]
